FAERS Safety Report 7580695-4 (Version None)
Quarter: 2011Q2

REPORT INFORMATION
  Report Type: 
  Country: None (occurrence: None)
  Receive Date: 20110620
  Receipt Date: 20110608
  Transmission Date: 20111010
  Serious: Yes (Hospitalization)
  Sender: FDA-Public Use
  Company Number: AEUSA201100148

PATIENT
  Age: 55 Year
  Sex: Female

DRUGS (1)
  1. GAMUNEX [Suspect]
     Indication: CHRONIC INFLAMMATORY DEMYELINATING POLYRADICULONEUROPATHY
     Dosage: 40 GM;QD;IV
     Route: 042
     Dates: start: 20110523, end: 20110526

REACTIONS (6)
  - PANCREATITIS [None]
  - NEUTROPENIA [None]
  - HAEMOLYSIS [None]
  - HAEMATURIA [None]
  - INFUSION RELATED REACTION [None]
  - DEHYDRATION [None]
